FAERS Safety Report 9624336 (Version 1)
Quarter: 2013Q4

REPORT INFORMATION
  Report Type: Spontaneous
  Country: CA (occurrence: CA)
  Receive Date: 20131015
  Receipt Date: 20131015
  Transmission Date: 20140711
  Serious: Yes (Other)
  Sender: FDA-Public Use
  Company Number: CA-GLAXOSMITHKLINE-A1044792A

PATIENT
  Age: 34 Year
  Sex: Male
  Weight: 64.5 kg

DRUGS (1)
  1. ADVAIR [Suspect]
     Indication: ASTHMA
     Dosage: 1PUFF TWICE PER DAY
     Route: 055
     Dates: start: 201204

REACTIONS (3)
  - Oral bacterial infection [Not Recovered/Not Resolved]
  - Oral disorder [Unknown]
  - Oral infection [Unknown]
